FAERS Safety Report 5705463-7 (Version None)
Quarter: 2008Q2

REPORT INFORMATION
  Report Type: 
  Country: None (occurrence: None)
  Receive Date: 20080410
  Receipt Date: 20080328
  Transmission Date: 20081010
  Serious: Yes (Death, Life-Threatening, Hospitalization, Other)
  Sender: FDA-Public Use
  Company Number: 100#08#2008-01907

PATIENT
  Age: 39 Year
  Sex: Female

DRUGS (2)
  1. METFORMIN HCL [Suspect]
     Indication: DRUG USE FOR UNKNOWN INDICATION
     Dosage: 100 METFORMIN 850 MG TABLETS; ORAL
     Route: 048
  2. SLOW RELEASE INSULIN (SLOW RELEASE INSULIN) [Concomitant]

REACTIONS (16)
  - AGITATION [None]
  - ATRIAL FIBRILLATION [None]
  - BACK PAIN [None]
  - BLOOD GLUCOSE INCREASED [None]
  - BLOOD SODIUM INCREASED [None]
  - CARDIAC ARREST [None]
  - DISEASE PROGRESSION [None]
  - HAEMODIALYSIS [None]
  - HYPOTENSION [None]
  - LACTIC ACIDOSIS [None]
  - METABOLIC ACIDOSIS [None]
  - MULTI-ORGAN FAILURE [None]
  - PULMONARY OEDEMA [None]
  - TACHYPNOEA [None]
  - VASOPLEGIA SYNDROME [None]
  - VENTRICULAR FIBRILLATION [None]
